FAERS Safety Report 5963712-4 (Version None)
Quarter: 2008Q4

REPORT INFORMATION
  Report Type: 
  Country: None (occurrence: None)
  Receive Date: 20081121
  Receipt Date: 20081121
  Transmission Date: 20090506
  Serious: Yes (Hospitalization)
  Sender: FDA-Public Use
  Company Number: None

PATIENT
  Sex: Female
  Weight: 132.9039 kg

DRUGS (4)
  1. RITUXIMAB [Suspect]
     Indication: ANTIPHOSPHOLIPID SYNDROME
     Dosage: 1000 MG IV
     Route: 042
     Dates: start: 20080321
  2. RITUXIMAB [Suspect]
     Indication: ANTIPHOSPHOLIPID SYNDROME
     Dosage: 1000 MG IV
     Route: 042
     Dates: start: 20080401
  3. ACYCLOVIR [Concomitant]
  4. LISINOPRIL [Concomitant]

REACTIONS (5)
  - HEADACHE [None]
  - PARAESTHESIA [None]
  - PARTIAL SEIZURES [None]
  - TONGUE DISORDER [None]
  - VENOUS ANGIOMA OF BRAIN [None]
